FAERS Safety Report 5144665-8 (Version None)
Quarter: 2006Q4

REPORT INFORMATION
  Report Type: 
  Country: None (occurrence: None)
  Receive Date: 20061031
  Receipt Date: 20061013
  Transmission Date: 20070319
  Serious: Yes (Life-Threatening, Hospitalization)
  Sender: FDA-Public Use
  Company Number: SP01009

PATIENT
  Age: 38 Year
  Sex: Male

DRUGS (3)
  1. BALSALAZIDE [Suspect]
     Indication: COLITIS ULCERATIVE
     Dosage: 2.25 MG GM/ORAL
     Route: 048
     Dates: start: 20060220, end: 20060314
  2. ASACOL [Concomitant]
  3. PREDNISOLONE [Concomitant]

REACTIONS (4)
  - CHEST PAIN [None]
  - ELECTROCARDIOGRAM CHANGE [None]
  - MYOCARDITIS [None]
  - TROPONIN INCREASED [None]
